FAERS Safety Report 11846861 (Version 1)
Quarter: 2015Q4

REPORT INFORMATION
  Report Type: Spontaneous
  Country: AU (occurrence: AU)
  Receive Date: 20151217
  Receipt Date: 20151217
  Transmission Date: 20160305
  Serious: Yes (Death, Hospitalization)
  Sender: FDA-Public Use
  Company Number: AU-MYLANLABS-2015M1045706

PATIENT

DRUGS (1)
  1. EPINEPHRINE. [Suspect]
     Active Substance: EPINEPHRINE
     Indication: HYPERSENSITIVITY
     Dosage: 4 SHOTS
     Dates: start: 20151023, end: 20151023

REACTIONS (1)
  - Anaphylactic reaction [Fatal]

NARRATIVE: CASE EVENT DATE: 20151023
